FAERS Safety Report 4987710-2 (Version None)
Quarter: 2006Q1

REPORT INFORMATION
  Report Type: 
  Country: None (occurrence: None)
  Receive Date: 20060309
  Receipt Date: 20050705
  Transmission Date: 20060701
  Serious: Yes (Other)
  Sender: FDA-Public Use
  Company Number: 378699

PATIENT
  Sex: Female
  Weight: 2.8 kg

DRUGS (4)
  1. ISOTRETINOIN [Suspect]
     Indication: ACNE
     Dosage: ORAL
     Route: 048
     Dates: start: 20030215, end: 20031115
  2. FOLIC ACID [Concomitant]
  3. EUTHYROX (LEVOTHYROXINE) [Concomitant]
  4. DIANE 35 (CYPROTERONE ACETATE/ETHINYL ESTRADIOL) [Concomitant]

REACTIONS (1)
  - NORMAL NEWBORN [None]
